FAERS Safety Report 22125318 (Version 3)
Quarter: 2023Q2

REPORT INFORMATION
  Report Type: Report from Study
  Country: TR (occurrence: TR)
  Receive Date: 20230322
  Receipt Date: 20230426
  Transmission Date: 20230722
  Serious: Yes (Hospitalization)
  Sender: FDA-Public Use
  Company Number: TR-SA-SAC20230317001427

PATIENT
  Age: 74 Year
  Sex: Male
  Weight: 70 kg

DRUGS (10)
  1. ISATUXIMAB [Suspect]
     Active Substance: ISATUXIMAB
     Indication: Plasma cell myeloma
     Dosage: 700 MG; INFUSION RATE (ML/H):  25 TO 150
     Route: 042
     Dates: start: 20220926, end: 20220926
  2. ISATUXIMAB [Suspect]
     Active Substance: ISATUXIMAB
     Dosage: 700 MG;INFUSION RATE (ML/H):  50 TO 200
     Route: 042
     Dates: start: 20221010, end: 20221010
  3. LENALIDOMIDE [Suspect]
     Active Substance: LENALIDOMIDE
     Indication: Plasma cell myeloma
     Dosage: UNK
     Route: 048
     Dates: start: 20220926, end: 20221002
  4. LENALIDOMIDE [Suspect]
     Active Substance: LENALIDOMIDE
     Dosage: UNK
     Route: 048
     Dates: start: 20221003, end: 20221009
  5. LENALIDOMIDE [Suspect]
     Active Substance: LENALIDOMIDE
     Dosage: UNK
     Route: 048
     Dates: start: 20221010, end: 20221016
  6. DEXAMETHASONE [Suspect]
     Active Substance: DEXAMETHASONE
     Indication: Plasma cell myeloma
     Dosage: UNK
     Route: 042
     Dates: start: 20220926, end: 20220926
  7. ASPIRIN [Concomitant]
     Active Substance: ASPIRIN
     Indication: Prophylaxis
     Dosage: UNK
     Route: 048
     Dates: start: 20220926, end: 20221020
  8. ACETAMINOPHEN [Concomitant]
     Active Substance: ACETAMINOPHEN
     Indication: Prophylaxis
     Dosage: UNK
     Route: 048
     Dates: start: 20221010, end: 20221010
  9. PHENIRAMINE [Concomitant]
     Active Substance: PHENIRAMINE
     Indication: Prophylaxis
     Dosage: UNK
     Route: 042
     Dates: start: 20221010, end: 20221010
  10. SINGULAIR [Concomitant]
     Active Substance: MONTELUKAST SODIUM
     Indication: Prophylaxis
     Dosage: UNK
     Route: 048
     Dates: start: 20221010, end: 20221010

REACTIONS (1)
  - Lower respiratory tract infection [Recovered/Resolved]

NARRATIVE: CASE EVENT DATE: 20221017
